FAERS Safety Report 6689318-X (Version None)
Quarter: 2010Q2

REPORT INFORMATION
  Report Type: 
  Country: None (occurrence: None)
  Receive Date: 20100420
  Receipt Date: 20100407
  Transmission Date: 20101027
  Serious: Yes (Hospitalization, Disabling, Other)
  Sender: FDA-Public Use
  Company Number: US-ELI_LILLY_AND_COMPANY-US200911006359

PATIENT
  Sex: Female
  Weight: 96.145 kg

DRUGS (9)
  1. ZYPREXA [Suspect]
     Indication: MAJOR DEPRESSION
     Dosage: 15 MG, DAILY (1/D)
     Route: 065
     Dates: start: 20030402, end: 20040202
  2. ZYPREXA [Suspect]
     Dosage: 7.5 MG, EACH EVENING
     Dates: start: 20040203
  3. ZYPREXA [Suspect]
     Dosage: 2.5 MG, UNK
     Dates: start: 20060403, end: 20070126
  4. ZYPREXA [Suspect]
     Dosage: 5 MG, EACH EVENING
     Dates: start: 20070127, end: 20070101
  5. ZYPREXA [Suspect]
     Dosage: 10 MG, UNK
     Dates: start: 20070101
  6. PAXIL [Concomitant]
     Dosage: 20 MG, EACH EVENING
  7. ALPRAZOLAM [Concomitant]
     Indication: ANXIETY
     Dosage: 0.5 MG, EACH EVENING
     Dates: start: 20030109
  8. PREDNISONE TAB [Concomitant]
     Dosage: 5 MG, OTHER
     Dates: start: 20051020
  9. FLONASE [Concomitant]
     Dosage: 120 UG, OTHER
     Route: 045
     Dates: start: 20051103

REACTIONS (4)
  - DIABETES MELLITUS [None]
  - DIABETIC RETINOPATHY [None]
  - HEPATIC STEATOSIS [None]
  - WEIGHT INCREASED [None]
